FAERS Safety Report 9846077 (Version 1)
Quarter: 2013Q4

REPORT INFORMATION
  Report Type: Spontaneous
  Country: US (occurrence: None)
  Receive Date: 20131223
  Receipt Date: 20131223
  Transmission Date: 20140711
  Serious: Yes (Other)
  Sender: FDA-Public Use
  Company Number: SYM-2013-00971

PATIENT
  Age: 36 Year
  Sex: Female

DRUGS (1)
  1. XENAZINE (TETRABENAZINE) [Suspect]
     Indication: DYSKINESIA
     Route: 048

REACTIONS (2)
  - Tremor [None]
  - Thought blocking [None]
